FAERS Safety Report 18133312 (Version 4)
Quarter: 2024Q4

REPORT INFORMATION
  Report Type: Spontaneous
  Country: CZ (occurrence: CZ)
  Receive Date: 20200811
  Receipt Date: 20241104
  Transmission Date: 20250115
  Serious: Yes (Other)
  Sender: MSN LABORATORIES PRIVATE LIMITED
  Company Number: CZ-EMA-DD-20200724-GONUGUNTLA_N1-140314

PATIENT

DRUGS (21)
  1. PREGABALIN [Suspect]
     Active Substance: PREGABALIN
     Indication: Pain
     Route: 065
  2. ACETAMINOPHEN\TRAMADOL [Suspect]
     Active Substance: ACETAMINOPHEN\TRAMADOL
     Indication: Pain
     Dosage: AT A DOSE OF UP TO 225 MG TRAMADOL (PARACETAMOL DOSE UNKNOWN) PER DAY
     Route: 065
  3. POLYETHYLENE GLYCOLS [Suspect]
     Active Substance: POLYETHYLENE GLYCOLS
     Indication: Constipation
     Dosage: ONCE OR TWICE A WEEK
     Route: 065
  4. CITALOPRAM [Suspect]
     Active Substance: CITALOPRAM
     Indication: Product used for unknown indication
     Route: 065
  5. VENLAFAXINE [Suspect]
     Active Substance: VENLAFAXINE HYDROCHLORIDE
     Indication: Product used for unknown indication
     Route: 065
  6. DULOXETINE [Suspect]
     Active Substance: DULOXETINE
     Indication: Product used for unknown indication
     Route: 065
  7. BUPRENORPHINE [Suspect]
     Active Substance: BUPRENORPHINE
     Indication: Pain
     Dosage: 253
     Route: 062
  8. FENTANYL [Suspect]
     Active Substance: FENTANYL
     Indication: Pain
     Route: 062
  9. TRAZODONE [Suspect]
     Active Substance: TRAZODONE HYDROCHLORIDE
     Indication: Depression
     Route: 065
  10. TRAZODONE [Suspect]
     Active Substance: TRAZODONE HYDROCHLORIDE
     Indication: Antidepressant therapy
  11. DICLOFENAC [Suspect]
     Active Substance: DICLOFENAC
     Indication: Pain
     Dosage: 100-200 MG/WEEK
     Route: 065
  12. NALOXONE HYDROCHLORIDE\OXYCODONE HYDROCHLORIDE [Suspect]
     Active Substance: NALOXONE HYDROCHLORIDE\OXYCODONE HYDROCHLORIDE
     Indication: Pain
     Route: 065
  13. LACTULOSE [Suspect]
     Active Substance: LACTULOSE
     Indication: Constipation
     Dosage: UP TO 9 SOUP SPOONS DAILY DIVIDED IN 3 DOSES
     Route: 065
  14. GABAPENTIN [Suspect]
     Active Substance: GABAPENTIN
     Indication: Pain
     Route: 065
  15. OXYCODONE [Suspect]
     Active Substance: OXYCODONE
     Indication: Pain
     Route: 065
  16. TAPENTADOL [Suspect]
     Active Substance: TAPENTADOL
     Indication: Pain
     Dosage: 200 MILLIGRAM, 2/DAY
     Route: 065
  17. TRAMADOL [Suspect]
     Active Substance: TRAMADOL
     Indication: Pain
     Route: 065
  18. TRAMADOL [Suspect]
     Active Substance: TRAMADOL
     Route: 065
  19. SODIUM PICOSULFATE [Suspect]
     Active Substance: SODIUM PICOSULFATE
     Indication: Product used for unknown indication
     Route: 065
  20. BISACODYL [Concomitant]
     Active Substance: BISACODYL
     Indication: Constipation
     Route: 065
  21. ACETAMINOPHEN [Concomitant]
     Active Substance: ACETAMINOPHEN
     Indication: Product used for unknown indication
     Route: 065

REACTIONS (15)
  - Mental impairment [Unknown]
  - Application site hypersensitivity [Unknown]
  - Application site reaction [Unknown]
  - Functional gastrointestinal disorder [Unknown]
  - Drug ineffective [Unknown]
  - Abdominal pain [Unknown]
  - Sedation [Unknown]
  - Flatulence [Unknown]
  - Constipation [Recovered/Resolved]
  - Weight increased [Unknown]
  - Headache [Unknown]
  - Vomiting [Unknown]
  - Dry mouth [Unknown]
  - Nausea [Unknown]
  - Intentional overdose [Unknown]
